FAERS Safety Report 5727079-9 (Version None)
Quarter: 2008Q2

REPORT INFORMATION
  Report Type: 
  Country: None (occurrence: None)
  Receive Date: 20080505
  Receipt Date: 20080423
  Transmission Date: 20081010
  Serious: Yes (Other)
  Sender: FDA-Public Use
  Company Number: US-JNJFOC-20080406864

PATIENT
  Sex: Male
  Weight: 89.99 kg

DRUGS (6)
  1. DITROPAN XL [Suspect]
     Indication: URINARY INCONTINENCE
     Route: 048
  2. ALLEGRA [Concomitant]
     Indication: SEASONAL ALLERGY
     Route: 048
  3. ZANTAC [Concomitant]
     Indication: GASTROOESOPHAGEAL REFLUX DISEASE
     Route: 048
  4. SINGULAIR [Concomitant]
     Indication: ASTHMA
     Route: 048
  5. PULMICORT [Concomitant]
     Indication: ASTHMA
     Route: 048
  6. XOPENEX [Concomitant]
     Indication: ASTHMA

REACTIONS (5)
  - DRY SKIN [None]
  - HYPOHIDROSIS [None]
  - OPTIC NEURITIS [None]
  - VISION BLURRED [None]
  - VISUAL DISTURBANCE [None]
